FAERS Safety Report 9522497 (Version 1)
Quarter: 2013Q3

REPORT INFORMATION
  Report Type: Spontaneous
  Country: US (occurrence: US)
  Receive Date: 20130913
  Receipt Date: 20130913
  Transmission Date: 20140515
  Serious: Yes (Death, Hospitalization)
  Sender: FDA-Public Use
  Company Number: US-B.I. PHARMACEUTICALS,INC./RIDGEFIELD-2013-BI-28196BP

PATIENT
  Sex: Male

DRUGS (1)
  1. PRADAXA [Suspect]
     Indication: ATRIAL FIBRILLATION
     Dosage: 300 MG
     Dates: start: 20110915

REACTIONS (6)
  - Retroperitoneal haemorrhage [Fatal]
  - Anaemia [Fatal]
  - Haematoma [Unknown]
  - Haematuria [Unknown]
  - Coagulopathy [Unknown]
  - Mucosal haemorrhage [Unknown]
